FAERS Safety Report 22055715 (Version 1)
Quarter: 2023Q1

REPORT INFORMATION
  Report Type: Spontaneous
  Country: IT (occurrence: IT)
  Receive Date: 20230302
  Receipt Date: 20230302
  Transmission Date: 20230417
  Serious: Yes (Other)
  Sender: FDA-Public Use
  Company Number: IT-GUERBET / GUERBET SpA-IT-20230012

PATIENT
  Age: 56 Year
  Sex: Male
  Weight: 62 kg

DRUGS (4)
  1. LIPIODOL [Suspect]
     Active Substance: ETHIODIZED OIL
     Indication: Transcatheter arterial chemoembolisation
     Dosage: LEFT HEPATIC ARTERY AND SUPER SELECTION OF THE SEGMENTAL ARTERY FEEDING THE HCC NODULE
     Route: 013
  2. LIPIODOL [Suspect]
     Active Substance: ETHIODIZED OIL
     Dosage: AFFERENT TUMOR ARTERY THAT ORIGINATED FROM THE RIGHT RENAL ARTERY
     Route: 013
  3. EPIRUBICIN [Suspect]
     Active Substance: EPIRUBICIN
     Indication: Transcatheter arterial chemoembolisation
     Dosage: LEFT HEPATIC ARTERY AND SUPER SELECTION OF THE SEGMENTAL ARTERY FEEDING THE HCC NODULE
     Route: 013
  4. EPIRUBICIN [Suspect]
     Active Substance: EPIRUBICIN
     Dosage: AFFERENT TUMOR ARTERY THAT ORIGINATED FROM THE RIGHT RENAL ARTERY
     Route: 013

REACTIONS (7)
  - Livedo reticularis [Recovered/Resolved]
  - Pain [Recovered/Resolved]
  - Multiple organ dysfunction syndrome [Recovered/Resolved]
  - Inflammation [Recovered/Resolved]
  - Bone marrow disorder [Recovered/Resolved]
  - Pleural effusion [Recovered/Resolved]
  - Alopecia [Recovered/Resolved]
